FAERS Safety Report 9615883 (Version 2)
Quarter: 2013Q4

REPORT INFORMATION
  Report Type: Spontaneous
  Country: US (occurrence: US)
  Receive Date: 20131011
  Receipt Date: 20131011
  Transmission Date: 20140711
  Serious: No
  Sender: FDA-Public Use
  Company Number: US-PURDUE-USA-2013-0097851

PATIENT
  Age: 80 Year
  Sex: Male

DRUGS (1)
  1. BUTRANS [Suspect]
     Indication: BACK PAIN
     Dosage: 20 MCG, UNK
     Route: 062
     Dates: start: 20130111, end: 20130116

REACTIONS (8)
  - Grunting [Recovered/Resolved]
  - Dyskinesia [Recovered/Resolved]
  - Mydriasis [Recovered/Resolved]
  - Slow response to stimuli [Recovered/Resolved]
  - Gait disturbance [Recovered/Resolved]
  - Fatigue [Recovered/Resolved]
  - Insomnia [Recovered/Resolved]
  - Tremor [Recovered/Resolved]
